FAERS Safety Report 20538580 (Version 1)
Quarter: 2022Q1

REPORT INFORMATION
  Report Type: Report from Study
  Country: SI (occurrence: SI)
  Receive Date: 20220302
  Receipt Date: 20220302
  Transmission Date: 20220423
  Serious: Yes (Other)
  Sender: FDA-Public Use
  Company Number: SI-JNJFOC-20210854275

PATIENT

DRUGS (2)
  1. STELARA [Suspect]
     Active Substance: USTEKINUMAB
     Indication: Crohn^s disease
     Route: 058
     Dates: start: 201710
  2. STELARA [Suspect]
     Active Substance: USTEKINUMAB
     Route: 058

REACTIONS (8)
  - Subdiaphragmatic abscess [Unknown]
  - Cholecystitis acute [Unknown]
  - Arthralgia [Unknown]
  - Headache [Unknown]
  - Constipation [Unknown]
  - Treatment failure [Unknown]
  - Product use issue [Unknown]
  - Off label use [Unknown]
